FAERS Safety Report 13820316 (Version 1)
Quarter: 2017Q3

REPORT INFORMATION
  Report Type: Spontaneous
  Country: FR (occurrence: FR)
  Receive Date: 20170801
  Receipt Date: 20170801
  Transmission Date: 20171127
  Serious: Yes (Other)
  Sender: FDA-Public Use
  Company Number: FR-MERCK KGAA-2023981

PATIENT
  Sex: Female

DRUGS (1)
  1. NOVOTHYROX [Suspect]
     Active Substance: LEVOTHYROXINE SODIUM
     Indication: PRODUCT USED FOR UNKNOWN INDICATION

REACTIONS (10)
  - Swelling [None]
  - Constipation [None]
  - Fatigue [None]
  - Tachycardia [None]
  - Abdominal distension [None]
  - Headache [None]
  - Depressed mood [None]
  - Vertigo [None]
  - Insomnia [None]
  - Loss of personal independence in daily activities [None]
